FAERS Safety Report 6651520-0 (Version None)
Quarter: 2010Q1

REPORT INFORMATION
  Report Type: 
  Country: None (occurrence: None)
  Receive Date: 20100325
  Receipt Date: 20100316
  Transmission Date: 20100710
  Serious: Yes (Hospitalization)
  Sender: FDA-Public Use
  Company Number: A0789824A

PATIENT
  Age: 64 Year
  Sex: Male
  Weight: 105.5 kg

DRUGS (9)
  1. AVANDIA [Suspect]
     Dosage: 2MG TWICE PER DAY
     Route: 048
     Dates: start: 20050101, end: 20070815
  2. AVANDAMET [Suspect]
     Route: 048
     Dates: start: 20040401, end: 20050101
  3. METFORMIN HCL [Concomitant]
  4. ATENOLOL [Concomitant]
  5. ZESTORETIC [Concomitant]
  6. VYTORIN [Concomitant]
  7. TESTOSTERONE [Concomitant]
  8. LISINOPRIL AND HYDROCHLOROTHIAZIDE [Concomitant]
  9. OMEPRAZOLE [Concomitant]

REACTIONS (3)
  - ERECTILE DYSFUNCTION [None]
  - MYOCARDIAL INFARCTION [None]
  - MYOCARDIAL ISCHAEMIA [None]
